FAERS Safety Report 5893822-1 (Version None)
Quarter: 2008Q3

REPORT INFORMATION
  Report Type: 
  Country: None (occurrence: None)
  Receive Date: 20080923
  Receipt Date: 20071026
  Transmission Date: 20090109
  Serious: No
  Sender: FDA-Public Use
  Company Number: US-ASTRAZENECA-2007UW24925

PATIENT
  Age: 42 Year
  Sex: Female

DRUGS (2)
  1. SEROQUEL [Suspect]
     Indication: BIPOLAR I DISORDER
     Route: 048
     Dates: start: 20071025, end: 20071025
  2. SEROQUEL [Suspect]
     Route: 048
     Dates: start: 20071026

REACTIONS (2)
  - LETHARGY [None]
  - PARAESTHESIA [None]
